FAERS Safety Report 6189487-4 (Version None)
Quarter: 2009Q2

REPORT INFORMATION
  Report Type: 
  Country: None (occurrence: None)
  Receive Date: 20090514
  Receipt Date: 20090508
  Transmission Date: 20091009
  Serious: Yes (Other)
  Sender: FDA-Public Use
  Company Number: CA-ASTRAZENECA-2009UW11714

PATIENT
  Age: 47 Year
  Sex: Male

DRUGS (2)
  1. SYMBICORT [Suspect]
     Indication: ASTHMA
     Dosage: 200 BID
     Route: 055
  2. VENTOLIN [Concomitant]

REACTIONS (2)
  - DYSPNOEA [None]
  - WHEEZING [None]
